FAERS Safety Report 4767706-6 (Version None)
Quarter: 2005Q3

REPORT INFORMATION
  Report Type: 
  Country: None (occurrence: None)
  Receive Date: 20050913
  Receipt Date: 20050801
  Transmission Date: 20060218
  Serious: Yes (Life-Threatening, Hospitalization)
  Sender: FDA-Public Use
  Company Number: US-BRISTOL-MYERS SQUIBB COMPANY-13057997

PATIENT
  Age: 68 Year
  Sex: Male

DRUGS (1)
  1. ERBITUX [Suspect]
     Indication: COLORECTAL CANCER METASTATIC
     Dosage: PATIENT RECEIVED A PARTIAL FIRST DOSE (EXACT DOSE UNKNOWN).
     Route: 042
     Dates: start: 20050701, end: 20050701

REACTIONS (2)
  - ANAPHYLACTOID REACTION [None]
  - STAPHYLOCOCCAL SEPSIS [None]
